FAERS Safety Report 12357300 (Version 1)
Quarter: 2016Q2

REPORT INFORMATION
  Report Type: Spontaneous
  Country: US (occurrence: US)
  Receive Date: 20160511
  Receipt Date: 20160511
  Transmission Date: 20160815
  Serious: Yes (Other)
  Sender: FDA-Public Use
  Company Number: US-BIOMARINAP-US-2016-109757

PATIENT
  Sex: Male
  Weight: 16 kg

DRUGS (1)
  1. NAGLAZYME [Suspect]
     Active Substance: GALSULFASE
     Indication: MUCOPOLYSACCHARIDOSIS VI
     Dosage: 20 MG, QW
     Route: 042
     Dates: start: 20070423

REACTIONS (2)
  - Nerve root compression [Not Recovered/Not Resolved]
  - Cervical cord compression [Not Recovered/Not Resolved]
